FAERS Safety Report 5161755-4 (Version None)
Quarter: 2006Q4

REPORT INFORMATION
  Report Type: 
  Country: None (occurrence: None)
  Receive Date: 20061130
  Receipt Date: 20061121
  Transmission Date: 20070319
  Serious: Yes (Hospitalization)
  Sender: FDA-Public Use
  Company Number: FR-GLAXOSMITHKLINE-B0448548A

PATIENT
  Age: 64 Year
  Sex: Male

DRUGS (4)
  1. AUGMENTIN '125' [Suspect]
     Indication: SUPERINFECTION LUNG
     Dosage: 3G PER DAY
     Route: 048
     Dates: start: 20061004, end: 20061016
  2. MUCOLYTIC [Concomitant]
     Route: 065
  3. IMMUNOSTIMULANT [Concomitant]
     Route: 065
  4. BRONCHODILATOR [Concomitant]
     Route: 065

REACTIONS (4)
  - ALANINE AMINOTRANSFERASE INCREASED [None]
  - BLOOD PHOSPHORUS INCREASED [None]
  - HEPATITIS CHOLESTATIC [None]
  - JAUNDICE [None]
